FAERS Safety Report 8591494-9 (Version None)
Quarter: 2012Q3

REPORT INFORMATION
  Report Type: 
  Country: None (occurrence: None)
  Receive Date: 20120814
  Receipt Date: 20120731
  Transmission Date: 20120928
  Serious: Yes (Death, Other)
  Sender: FDA-Public Use
  Company Number: CA-RANBAXY-2012US-58819

PATIENT
  Age: 60 Year
  Sex: Male

DRUGS (5)
  1. MIDAZOLAM [Suspect]
     Indication: STATUS EPILEPTICUS
     Dosage: UNK
     Route: 065
  2. MIDAZOLAM [Suspect]
     Dosage: 30 MG/HOUR
     Route: 065
  3. PROPOFOL [Suspect]
     Indication: STATUS EPILEPTICUS
     Dosage: UNK
     Route: 065
  4. LEVETIRACETAM [Concomitant]
     Indication: CONVULSION
     Route: 065
  5. PROPOFOL [Suspect]
     Dosage: 50 A?G/KG/MIN
     Route: 065

REACTIONS (1)
  - HYPOTENSION [None]
